FAERS Safety Report 5209177-1 (Version None)
Quarter: 2007Q1

REPORT INFORMATION
  Report Type: 
  Country: None (occurrence: None)
  Receive Date: 20070116
  Receipt Date: 20070109
  Transmission Date: 20070707
  Serious: Yes (Other)
  Sender: FDA-Public Use
  Company Number: DE-ROCHE-445053

PATIENT
  Age: 64 Year
  Sex: Male
  Weight: 80 kg

DRUGS (2)
  1. VALCYTE [Suspect]
     Route: 048
     Dates: start: 20050830, end: 20051018
  2. VALCYTE [Suspect]
     Route: 048
     Dates: start: 20051019, end: 20051115

REACTIONS (2)
  - C-REACTIVE PROTEIN INCREASED [None]
  - LEUKOPENIA [None]
